FAERS Safety Report 4537530-8 (Version None)
Quarter: 2005Q1

REPORT INFORMATION
  Report Type: 
  Country: None (occurrence: None)
  Receive Date: 20041216
  Receipt Date: 20031021
  Transmission Date: 20050727
  Serious: Yes (Hospitalization)
  Sender: FDA-Public Use
  Company Number: HQWYE412022OCT03

PATIENT
  Age: 8 Year
  Sex: Female

DRUGS (3)
  1. EFFEXOR XR [Suspect]
     Dosage: 37.5 MG 1X PER 1 DAY, ORAL
     Route: 048
     Dates: start: 20030225
  2. RITALIN - SLOW RELEASE (METHYLPHENIDATE HYDROCHLORIDE) [Concomitant]
  3. CEFDINIR [Concomitant]

REACTIONS (1)
  - CONVULSION [None]
